FAERS Safety Report 15015524 (Version 1)
Quarter: 2018Q2

REPORT INFORMATION
  Report Type: Spontaneous
  Country: US (occurrence: US)
  Receive Date: 20180522
  Receipt Date: 20180522
  Transmission Date: 20180711
  Serious: Yes (Hospitalization)
  Sender: FDA-Public Use
  Company Number: None

PATIENT
  Age: 8 Year
  Sex: Male
  Weight: 24.6 kg

DRUGS (5)
  1. DAUNORUBICIN [Suspect]
     Active Substance: DAUNORUBICIN
     Dates: end: 20180508
  2. VINCRISTINE SULFATE. [Suspect]
     Active Substance: VINCRISTINE SULFATE
     Dates: end: 20180508
  3. CYTARABINE. [Suspect]
     Active Substance: CYTARABINE
     Dates: end: 20180511
  4. ONCASPAR [Suspect]
     Active Substance: PEGASPARGASE
     Dosage: ?          OTHER DOSE:2325 UNIT;?
     Dates: end: 20180511
  5. DEXAMETHASONE. [Suspect]
     Active Substance: DEXAMETHASONE
     Dates: end: 20180512

REACTIONS (12)
  - Unresponsive to stimuli [None]
  - Pupil fixed [None]
  - Cerebral haemorrhage [None]
  - Disorientation [None]
  - Toxicity to various agents [None]
  - Seizure [None]
  - Drug dose omission [None]
  - Blood pressure increased [None]
  - Ischaemia [None]
  - Posterior reversible encephalopathy syndrome [None]
  - Feeling abnormal [None]
  - Cardio-respiratory arrest [None]

NARRATIVE: CASE EVENT DATE: 20180513
